FAERS Safety Report 7426330-7 (Version None)
Quarter: 2011Q2

REPORT INFORMATION
  Report Type: 
  Country: None (occurrence: None)
  Receive Date: 20110420
  Receipt Date: 20110412
  Transmission Date: 20111010
  Serious: Yes (Other)
  Sender: FDA-Public Use
  Company Number: B0713255A

PATIENT
  Sex: Female
  Weight: 56 kg

DRUGS (14)
  1. FLUDARA [Suspect]
     Indication: STEM CELL TRANSPLANT
     Dosage: 30MGM2 PER DAY
     Route: 042
     Dates: start: 20080706, end: 20080708
  2. GRAN [Suspect]
     Dates: start: 20080716, end: 20080725
  3. FLUCONAZOLE [Concomitant]
     Dosage: 200MG PER DAY
     Route: 048
     Dates: start: 20080705, end: 20090628
  4. RAMELTEON [Concomitant]
     Dosage: .3MG PER DAY
     Route: 042
     Dates: start: 20080706, end: 20080709
  5. METHOTREXATE [Suspect]
     Dosage: 15MG PER DAY
     Route: 042
     Dates: start: 20080712, end: 20080712
  6. CYCLOSPORINE [Concomitant]
     Indication: IMMUNOSUPPRESSION
     Dosage: 170MG PER DAY
     Route: 065
     Dates: start: 20080710, end: 20090329
  7. METHOTREXATE [Suspect]
     Dosage: 15MG PER DAY
     Route: 042
     Dates: start: 20080714, end: 20080714
  8. ZOVIRAX [Concomitant]
     Dosage: 1000MG PER DAY
     Route: 048
     Dates: start: 20080705, end: 20080814
  9. ALKERAN [Suspect]
     Indication: STEM CELL TRANSPLANT
     Dosage: 100MGM2 PER DAY
     Route: 042
     Dates: start: 20080709, end: 20080709
  10. URSO 250 [Concomitant]
     Dosage: 600MG PER DAY
     Route: 048
     Dates: start: 20080705, end: 20090329
  11. METHOTREXATE [Suspect]
     Dosage: 15MG PER DAY
     Route: 042
     Dates: start: 20080717, end: 20080717
  12. FAMOTIDINE [Concomitant]
     Dosage: 40MG PER DAY
     Route: 048
     Dates: start: 20080705, end: 20090628
  13. CIPROFLOXACIN HCL [Concomitant]
     Dosage: 600MG PER DAY
     Route: 048
     Dates: start: 20080705, end: 20080721
  14. DEXAMETHASONE [Concomitant]
     Dosage: 20MG PER DAY
     Dates: start: 20080709, end: 20080709

REACTIONS (1)
  - FEBRILE NEUTROPENIA [None]
